FAERS Safety Report 7625308-8 (Version None)
Quarter: 2011Q3

REPORT INFORMATION
  Report Type: 
  Country: None (occurrence: None)
  Receive Date: 20110721
  Receipt Date: 20110718
  Transmission Date: 20111222
  Serious: Yes (Other)
  Sender: FDA-Public Use
  Company Number: US-PFIZER INC-2011144236

PATIENT
  Sex: Female
  Weight: 53.968 kg

DRUGS (5)
  1. NEURONTIN [Suspect]
     Indication: PAIN IN EXTREMITY
     Dosage: 300 MG, 3X/DAY
     Route: 048
  2. NEURONTIN [Suspect]
     Indication: HYPOAESTHESIA
  3. VITAMIN B-12 [Concomitant]
     Dosage: UNK
  4. NEURONTIN [Suspect]
     Indication: NEURALGIA
  5. CALCIUM [Concomitant]
     Dosage: UNK

REACTIONS (4)
  - VISUAL IMPAIRMENT [None]
  - GASTROINTESTINAL DISORDER [None]
  - WEIGHT INCREASED [None]
  - EYE DISORDER [None]
